FAERS Safety Report 4917716-0 (Version None)
Quarter: 2006Q1

REPORT INFORMATION
  Report Type: 
  Country: None (occurrence: None)
  Receive Date: 20060221
  Receipt Date: 20060209
  Transmission Date: 20060701
  Serious: Yes (Hospitalization)
  Sender: FDA-Public Use
  Company Number: FR-ROCHE-436045

PATIENT
  Age: 44 Year
  Sex: Female
  Weight: 55 kg

DRUGS (3)
  1. FUZEON [Suspect]
     Indication: DRUG USE FOR UNKNOWN INDICATION
     Route: 058
     Dates: start: 20050629, end: 20051025
  2. TIPRANAVIR [Suspect]
     Indication: DRUG USE FOR UNKNOWN INDICATION
     Route: 048
  3. NORVIR [Concomitant]
     Dosage: DOSING REPORTED AS 200 MG X2.

REACTIONS (9)
  - DRUG HYPERSENSITIVITY [None]
  - DYSPNOEA [None]
  - EOSINOPHILIA [None]
  - FATIGUE [None]
  - GENITAL LESION [None]
  - INJECTION SITE OEDEMA [None]
  - PRURITUS [None]
  - TONGUE ULCERATION [None]
  - WEIGHT INCREASED [None]
